FAERS Safety Report 7407681-9 (Version None)
Quarter: 2011Q2

REPORT INFORMATION
  Report Type: 
  Country: None (occurrence: None)
  Receive Date: 20110405
  Receipt Date: 20110328
  Transmission Date: 20111010
  Serious: Yes (Other)
  Sender: FDA-Public Use
  Company Number: GB-ACCORD-007521

PATIENT
  Age: 65 Year
  Sex: Male

DRUGS (7)
  1. PREDNISOLONE [Suspect]
     Indication: RENAL VASCULITIS
     Dosage: 25.00  MG-
     Dates: start: 20080901
  2. RITUXIMAB (RITUXIMAB ) [Suspect]
     Indication: RENAL VASCULITIS
     Dosage: 375.00 MG/M2-1.00 TIMES PER-1.0/WEEKS
     Dates: start: 20090501, end: 20091201
  3. CYCLOPHOSPHAMIDE [Suspect]
     Indication: RENAL VASCULITIS
     Dosage: 200.00-MG-1.0DAYS
     Dates: start: 20071101, end: 20080401
  4. MYCOPHENOLATE MOFETIL [Suspect]
     Indication: RENAL VASCULITIS
     Dosage: 1.00-G-2.00 TIMES	/  PER-1.0DAYS
  5. METHYLPREDNISOLONE [Concomitant]
  6. CO-TRIMOXAZOLE (CO-TRIMOXAZOLE) [Suspect]
     Indication: PROPHYLAXIS
  7. AZATHIOPRINE [Suspect]
     Indication: PRODUCT USED FOR UNKNOWN INDICATION
     Dosage: 150.00-MG-1.0DAYS
     Dates: start: 20080701

REACTIONS (15)
  - LOWER RESPIRATORY TRACT INFECTION [None]
  - LEUKOPENIA [None]
  - MUSCULAR WEAKNESS [None]
  - OFF LABEL USE [None]
  - MYELITIS TRANSVERSE [None]
  - DRUG INEFFECTIVE [None]
  - URINARY RETENTION [None]
  - CUSHING'S SYNDROME [None]
  - PLEURAL FIBROSIS [None]
  - SENSORY LOSS [None]
  - VASCULITIS [None]
  - FIBROSIS [None]
  - RENAL TUBULAR ATROPHY [None]
  - INFLAMMATION [None]
  - CONSTIPATION [None]
